FAERS Safety Report 6695457-X (Version None)
Quarter: 2010Q2

REPORT INFORMATION
  Report Type: 
  Country: None (occurrence: None)
  Receive Date: 20100422
  Receipt Date: 20100422
  Transmission Date: 20101027
  Serious: No
  Sender: FDA-Public Use
  Company Number: None

PATIENT
  Sex: Female
  Weight: 49.8957 kg

DRUGS (4)
  1. CLONIDINE [Suspect]
     Indication: BLOOD PRESSURE
  2. NORVASC [Suspect]
  3. COREG [Suspect]
  4. CARDURA [Suspect]

REACTIONS (4)
  - OEDEMA PERIPHERAL [None]
  - PAIN IN EXTREMITY [None]
  - PRODUCT SUBSTITUTION ISSUE [None]
  - URTICARIA [None]
